FAERS Safety Report 16670865 (Version 2)
Quarter: 2019Q4

REPORT INFORMATION
  Report Type: Spontaneous
  Country: US (occurrence: US)
  Receive Date: 20190805
  Receipt Date: 20191105
  Transmission Date: 20200122
  Serious: No
  Sender: FDA-Public Use
  Company Number: US-RADIUS HEALTH INC.-2019US002228

PATIENT
  Age: 66 Year
  Sex: Female

DRUGS (3)
  1. METOPROLOL. [Suspect]
     Active Substance: METOPROLOL
     Indication: PRODUCT USED FOR UNKNOWN INDICATION
     Dosage: 50 MG
  2. TYMLOS [Suspect]
     Active Substance: ABALOPARATIDE
     Indication: OSTEOPOROSIS POSTMENOPAUSAL
     Dosage: 80 MCG, DAILY
     Route: 058
     Dates: start: 20190601
  3. TYMLOS [Suspect]
     Active Substance: ABALOPARATIDE
     Dosage: 60 MG, DAILY
     Route: 058
     Dates: start: 201905

REACTIONS (3)
  - Fear [Unknown]
  - Incorrect dosage administered [Unknown]
  - Bone pain [Unknown]

NARRATIVE: CASE EVENT DATE: 201905
